FAERS Safety Report 18028630 (Version 1)
Quarter: 2020Q3

REPORT INFORMATION
  Report Type: Spontaneous
  Country: CA (occurrence: CA)
  Receive Date: 20200715
  Receipt Date: 20200715
  Transmission Date: 20201103
  Serious: Yes (Other)
  Sender: FDA-Public Use
  Company Number: CA-ASTRAZENECA-2020SE87288

PATIENT
  Age: 70 Year
  Sex: Male

DRUGS (3)
  1. BRILINTA [Suspect]
     Active Substance: TICAGRELOR
     Indication: MYOCARDIAL INFARCTION
     Route: 048
  2. ATORVASTATIN [Concomitant]
     Active Substance: ATORVASTATIN
     Dosage: 80.0MG UNKNOWN
     Route: 065
  3. ASA [Concomitant]
     Active Substance: ASPIRIN
     Dosage: 80.0MG UNKNOWN
     Route: 065

REACTIONS (5)
  - Haemorrhage [Unknown]
  - Skin discolouration [Unknown]
  - Neoplasm malignant [Unknown]
  - COVID-19 [Unknown]
  - Contusion [Unknown]
